FAERS Safety Report 4341460-4 (Version None)
Quarter: 2004Q2

REPORT INFORMATION
  Report Type: 
  Country: None (occurrence: None)
  Receive Date: 20040415
  Receipt Date: 20040331
  Transmission Date: 20050107
  Serious: Yes (Other)
  Sender: FDA-Public Use
  Company Number: US_0404102026

PATIENT
  Age: 65 Year
  Sex: Female

DRUGS (2)
  1. HUMULIN 70/30 [Suspect]
     Dates: end: 20031101
  2. HUMALOG [Suspect]
     Dates: start: 20031101

REACTIONS (6)
  - ARTHROPOD BITE [None]
  - BONE INFECTION [None]
  - DRUG HYPERSENSITIVITY [None]
  - LOCALISED INFECTION [None]
  - OEDEMA PERIPHERAL [None]
  - TOE AMPUTATION [None]
